FAERS Safety Report 6391696-6 (Version None)
Quarter: 2009Q4

REPORT INFORMATION
  Report Type: 
  Country: None (occurrence: None)
  Receive Date: 20091007
  Receipt Date: 20090805
  Transmission Date: 20100525
  Serious: No
  Sender: FDA-Public Use
  Company Number: US-BAYER-200929510NA

PATIENT
  Age: 38 Year
  Sex: Female
  Weight: 91 kg

DRUGS (2)
  1. MIRENA [Suspect]
     Indication: CONTRACEPTION
     Route: 015
     Dates: start: 20090615
  2. AMBIEN [Concomitant]

REACTIONS (3)
  - AMENORRHOEA [None]
  - NAUSEA [None]
  - URINARY TRACT INFECTION [None]
